FAERS Safety Report 7818433-X (Version None)
Quarter: 2011Q4

REPORT INFORMATION
  Report Type: 
  Country: None (occurrence: None)
  Receive Date: 20111017
  Receipt Date: 20111014
  Transmission Date: 20120403
  Serious: Yes (Other)
  Sender: FDA-Public Use
  Company Number: CH-BAYER-2011-098945

PATIENT
  Age: 84 Year
  Sex: Female

DRUGS (8)
  1. ASPIRIN [Concomitant]
     Dosage: UNK
  2. CRESTOR [Concomitant]
     Dosage: UNK
  3. ESCITALOPRAM [Concomitant]
     Dosage: UNK
  4. METOPROLOL SUCCINATE [Concomitant]
     Dosage: UNK
  5. PERINDOPRIL ERBUMINE [Concomitant]
     Dosage: UNK
  6. FLAGYL [Suspect]
     Dosage: 500 MG, TID
     Route: 048
     Dates: end: 20110904
  7. TRAZODONE HCL [Concomitant]
     Dosage: UNK
  8. CIPROFLAXACIN [Suspect]
     Dosage: UNK
     Route: 048
     Dates: end: 20110904

REACTIONS (3)
  - PANIC REACTION [None]
  - DYSAESTHESIA [None]
  - HEADACHE [None]
